FAERS Safety Report 9728475 (Version 2)
Quarter: 2013Q4

REPORT INFORMATION
  Report Type: Report from Study
  Country: IT (occurrence: IT)
  Receive Date: 20131204
  Receipt Date: 20131230
  Transmission Date: 20140711
  Serious: Yes (Hospitalization)
  Sender: FDA-Public Use
  Company Number: IT-BAYER-2013-145281

PATIENT
  Age: 67 Year
  Sex: Male

DRUGS (10)
  1. REGORAFENIB [Suspect]
     Indication: COLORECTAL CANCER METASTATIC
     Dosage: TOTAL DAILY DOSE 160MG
     Route: 048
     Dates: start: 20131023
  2. REGORAFENIB [Suspect]
     Indication: COLORECTAL CANCER METASTATIC
     Dosage: 40 MG, TID
  3. TAPENTADOL HYDROCHLORIDE [Concomitant]
     Dosage: 50MG
  4. DEURSIL [Concomitant]
     Dosage: 450, 1CP/DAY
  5. NORVASC [Concomitant]
     Dosage: 10MG
  6. LASIX [Concomitant]
     Dosage: 25MG
  7. ATENOLOL [Concomitant]
     Dosage: 50MG
  8. PANTORC [Concomitant]
     Dosage: 30MG
  9. FRAXIPARINA [Concomitant]
     Dosage: 0.4 1FL SC/DAY
     Route: 058
  10. DIOSMECTAL [Concomitant]
     Dosage: 2-3BST/DAY

REACTIONS (1)
  - Hemiparesis [Not Recovered/Not Resolved]
